FAERS Safety Report 7229786-8 (Version None)
Quarter: 2011Q1

REPORT INFORMATION
  Report Type: 
  Country: None (occurrence: None)
  Receive Date: 20110117
  Receipt Date: 20110105
  Transmission Date: 20110831
  Serious: Yes (Hospitalization)
  Sender: FDA-Public Use
  Company Number: US-CELGENEUS-163-21880-10050102

PATIENT
  Sex: Male

DRUGS (4)
  1. REVLIMID [Suspect]
     Indication: MULTIPLE MYELOMA
     Route: 048
     Dates: start: 20090401
  2. REVLIMID [Suspect]
     Route: 048
     Dates: start: 20100101
  3. REVLIMID [Suspect]
     Route: 048
     Dates: start: 20110101
  4. PREDNISONE [Concomitant]
     Route: 065

REACTIONS (5)
  - CONSTIPATION [None]
  - CROHN'S DISEASE [None]
  - SINUSITIS [None]
  - INTESTINAL OBSTRUCTION [None]
  - ABDOMINAL PAIN [None]
